FAERS Safety Report 24767669 (Version 1)
Quarter: 2024Q4

REPORT INFORMATION
  Report Type: Spontaneous
  Country: SA (occurrence: None)
  Receive Date: 20241221
  Receipt Date: 20241221
  Transmission Date: 20250114
  Serious: Yes (Disabling)
  Sender: Public
  Company Number: None

PATIENT
  Age: 31 Year
  Sex: Male
  Weight: 75 kg

DRUGS (3)
  1. LUSTRAL [Suspect]
     Active Substance: SERTRALINE HYDROCHLORIDE
     Indication: Irritable bowel syndrome
     Route: 048
     Dates: start: 20230622, end: 20240401
  2. OMEGA 3 [Concomitant]
     Active Substance: CAPSAICIN
  3. Benfotiamin R- ALA [Concomitant]

REACTIONS (10)
  - Drug withdrawal syndrome [None]
  - Burning sensation [None]
  - Sensory loss [None]
  - Therapy cessation [None]
  - Post-traumatic stress disorder [None]
  - Sexual dysfunction [None]
  - Genital burning sensation [None]
  - Penis disorder [None]
  - Genital hypoaesthesia [None]
  - Penile curvature [None]

NARRATIVE: CASE EVENT DATE: 20240415
